FAERS Safety Report 5146342-6 (Version None)
Quarter: 2006Q4

REPORT INFORMATION
  Report Type: 
  Country: None (occurrence: None)
  Receive Date: 20061108
  Receipt Date: 20061030
  Transmission Date: 20070319
  Serious: Yes (Hospitalization)
  Sender: FDA-Public Use
  Company Number: FR-ABBOTT-06P-056-0348414-00

PATIENT
  Age: 50 Year
  Sex: Male

DRUGS (9)
  1. DEPAKOTE [Suspect]
     Indication: BIPOLAR I DISORDER
     Route: 048
     Dates: start: 20060701, end: 20060918
  2. CYAMEMAZINE [Suspect]
     Indication: DRUG USE FOR UNKNOWN INDICATION
     Route: 048
     Dates: start: 20060830, end: 20060907
  3. CYAMEMAZINE [Suspect]
     Route: 048
     Dates: start: 20060908, end: 20060917
  4. CYAMEMAZINE [Suspect]
     Dosage: DOSE DECREASED, UNKNOWN
     Route: 048
     Dates: start: 20060918, end: 20060921
  5. TRIHEXYPHENIDYL HYDROCHLORIDE [Suspect]
     Indication: DRUG USE FOR UNKNOWN INDICATION
     Route: 048
     Dates: start: 20060912, end: 20060921
  6. CLORAZEPATE DIPOTASSIUM [Concomitant]
     Indication: DRUG USE FOR UNKNOWN INDICATION
     Route: 048
     Dates: end: 20060913
  7. LITHIUM CARBONATE [Concomitant]
     Indication: BIPOLAR I DISORDER
     Route: 048
     Dates: start: 20060911
  8. CLONAZEPAM [Concomitant]
     Indication: DRUG USE FOR UNKNOWN INDICATION
     Route: 048
     Dates: start: 20060912, end: 20060914
  9. CLONAZEPAM [Concomitant]
     Route: 048
     Dates: start: 20060915

REACTIONS (3)
  - INTENTIONAL OVERDOSE [None]
  - PYREXIA [None]
  - RHABDOMYOLYSIS [None]
